FAERS Safety Report 7587285-8 (Version None)
Quarter: 2011Q3

REPORT INFORMATION
  Report Type: 
  Country: None (occurrence: None)
  Receive Date: 20110701
  Receipt Date: 20110621
  Transmission Date: 20111222
  Serious: Yes (Other)
  Sender: FDA-Public Use
  Company Number: GB-GENENTECH-320724

PATIENT
  Age: 73 Year
  Sex: Male

DRUGS (4)
  1. PREDNISOLONE [Suspect]
     Indication: FOLLICLE CENTRE LYMPHOMA, FOLLICULAR GRADE I, II, III STAGE I
     Dosage: UNK
     Route: 065
     Dates: start: 20090801
  2. VINCRISTINE [Suspect]
     Indication: FOLLICLE CENTRE LYMPHOMA, FOLLICULAR GRADE I, II, III STAGE I
     Dosage: UNK
     Route: 065
     Dates: start: 20090801
  3. RITUXAN [Suspect]
     Indication: FOLLICLE CENTRE LYMPHOMA, FOLLICULAR GRADE I, II, III STAGE I
     Dosage: UNK
     Route: 065
     Dates: start: 20090801
  4. CYCLOPHOSPHAMIDE [Suspect]
     Indication: FOLLICLE CENTRE LYMPHOMA, FOLLICULAR GRADE I, II, III STAGE I
     Dosage: UNK
     Route: 065
     Dates: start: 20090801

REACTIONS (3)
  - COUGH [None]
  - NEUTROPENIA [None]
  - PNEUMOCYSTIS JIROVECI INFECTION [None]
